FAERS Safety Report 8444088-X (Version None)
Quarter: 2012Q2

REPORT INFORMATION
  Report Type: 
  Country: None (occurrence: None)
  Receive Date: 20120618
  Receipt Date: 20120614
  Transmission Date: 20120825
  Serious: Yes (Other)
  Sender: FDA-Public Use
  Company Number: PHEH2012US011891

PATIENT
  Sex: Female

DRUGS (6)
  1. XANAX [Concomitant]
     Dosage: 0.05 MG, UNK
  2. NITROGLYCERIN [Concomitant]
  3. ACCUPRIL [Concomitant]
     Dosage: 40 MG, UNK
  4. LOPRESSOR [Suspect]
     Dosage: 50 MG, UNK
  5. HALCION [Concomitant]
  6. NORVASC [Concomitant]
     Dosage: 20 MG, UNK

REACTIONS (3)
  - SUPERFICIAL INJURY OF EYE [None]
  - AORTIC ANEURYSM [None]
  - ANGINA PECTORIS [None]
